FAERS Safety Report 10222744 (Version 1)
Quarter: 2014Q2

REPORT INFORMATION
  Report Type: Spontaneous
  Country: IT (occurrence: IT)
  Receive Date: 20140606
  Receipt Date: 20140606
  Transmission Date: 20141212
  Serious: Yes (Other)
  Sender: FDA-Public Use
  Company Number: IT-ASTRAZENECA-2014SE38346

PATIENT
  Age: 20834 Day
  Sex: Female
  Weight: 76 kg

DRUGS (4)
  1. FASLODEX [Suspect]
     Indication: BREAST CANCER
     Dosage: 250MG/5ML SOLUTION FOR INJECTION, 500 MG, UNKNOWN
     Route: 030
     Dates: start: 20100910, end: 20140521
  2. HERCEPTIN [Concomitant]
     Indication: BREAST CANCER
     Dosage: 150 MG POWDER FOR INFUSION SOLUTION
     Dates: start: 20090306, end: 20140513
  3. TACHIDOL [Concomitant]
     Indication: PAIN
     Dosage: 500 MG/30MG
     Route: 048
  4. AUGMENTIN [Concomitant]
     Dosage: 875MG/125MG TABLETS, 2 DF, UNKNOWN
     Route: 048
     Dates: start: 20140517, end: 20140521

REACTIONS (6)
  - Chest pain [Recovering/Resolving]
  - Cough [Recovering/Resolving]
  - Dyspnoea [Recovering/Resolving]
  - Presyncope [Recovering/Resolving]
  - Disease progression [Unknown]
  - Diaphragmatic paralysis [Unknown]
